FAERS Safety Report 5934602-8 (Version None)
Quarter: 2008Q4

REPORT INFORMATION
  Report Type: 
  Country: None (occurrence: None)
  Receive Date: 20081029
  Receipt Date: 20081017
  Transmission Date: 20090506
  Serious: Yes (Other)
  Sender: FDA-Public Use
  Company Number: GB-PFIZER INC-2008088308

PATIENT
  Age: 46 Year
  Sex: Female
  Weight: 100 kg

DRUGS (5)
  1. CHAMPIX [Suspect]
     Indication: SMOKING CESSATION THERAPY
     Route: 048
     Dates: start: 20080828, end: 20080929
  2. ACETAMINOPHEN W/ CODEINE [Concomitant]
  3. FEXOFENADINE [Concomitant]
  4. FLUTICASONE PROPIONATE [Concomitant]
  5. LEVOTHYROXINE SODIUM [Concomitant]

REACTIONS (4)
  - ABDOMINAL PAIN [None]
  - POLLAKIURIA [None]
  - SUICIDAL IDEATION [None]
  - TEARFULNESS [None]
